FAERS Safety Report 5215908-7 (Version None)
Quarter: 2007Q1

REPORT INFORMATION
  Report Type: 
  Country: None (occurrence: None)
  Receive Date: 20070123
  Receipt Date: 20070122
  Transmission Date: 20070707
  Serious: Yes (Other)
  Sender: FDA-Public Use
  Company Number: US-GLAXOSMITHKLINE-A0636235A

PATIENT
  Age: 86 Year
  Sex: Female

DRUGS (3)
  1. DEBROX DROPS [Suspect]
     Dosage: 3DROP SINGLE DOSE
     Route: 001
     Dates: start: 20070118, end: 20070118
  2. LEVOXYL [Concomitant]
  3. NIFEDIPINE [Concomitant]

REACTIONS (3)
  - DEAFNESS [None]
  - EAR DISCOMFORT [None]
  - PANIC REACTION [None]
